FAERS Safety Report 10723835 (Version 1)
Quarter: 2015Q1

REPORT INFORMATION
  Report Type: Spontaneous
  Country: US (occurrence: None)
  Receive Date: 20150114
  Receipt Date: 20150114
  Transmission Date: 20150721
  Serious: Yes (Other)
  Sender: FDA-Public Use
  Company Number: 54973AE#1590

PATIENT
  Age: 09 Year
  Sex: Male
  Weight: 31.75 kg

DRUGS (3)
  1. COLD N COUGH 4 KIDS [Suspect]
     Active Substance: HOMEOPATHICS
     Indication: NASOPHARYNGITIS
     Dosage: BY MOUTH ONCE
     Route: 048
  2. MOTRIN [Concomitant]
     Active Substance: IBUPROFEN
  3. CONCERTA [Concomitant]
     Active Substance: METHYLPHENIDATE HYDROCHLORIDE

REACTIONS (1)
  - Generalised tonic-clonic seizure [None]

NARRATIVE: CASE EVENT DATE: 20141227
